FAERS Safety Report 7481647-5 (Version None)
Quarter: 2011Q2

REPORT INFORMATION
  Report Type: 
  Country: None (occurrence: None)
  Receive Date: 20110516
  Receipt Date: 20110503
  Transmission Date: 20111010
  Serious: Yes (Hospitalization)
  Sender: FDA-Public Use
  Company Number: US-ELI_LILLY_AND_COMPANY-US201105002077

PATIENT
  Age: 34 Year
  Sex: Male

DRUGS (3)
  1. DULOXETINE HYDROCHLORIDE [Suspect]
     Dosage: 60 MG, QD
  2. ZYPREXA [Suspect]
     Dosage: 20 MG, QD
  3. VENLAFAXINE [Concomitant]
     Dosage: 150 MG, QD

REACTIONS (4)
  - URINARY HESITATION [None]
  - DRUG INTERACTION [None]
  - URINARY RETENTION [None]
  - URINARY INCONTINENCE [None]
